FAERS Safety Report 8992972 (Version 1)
Quarter: 2013Q1

REPORT INFORMATION
  Report Type: Spontaneous
  Country: BR (occurrence: BR)
  Receive Date: 20130102
  Receipt Date: 20130102
  Transmission Date: 20140127
  Serious: Yes (Hospitalization, Other)
  Sender: FDA-Public Use
  Company Number: PHHY2012BR121426

PATIENT
  Sex: Female

DRUGS (4)
  1. DIOVAN [Suspect]
     Indication: HYPERTENSION
     Dosage: 160 MG, ONCE IN THE MORNING
  2. DIOVAN [Suspect]
     Dosage: 320 MG, UNK
  3. DIOVAN AMLO [Suspect]
     Indication: HYPERTENSION
     Dosage: 1 DF (160 MG VALS AND 10 MG AMLO), IN THE MORNING
     Dates: end: 201112
  4. SPIRONOLACTONE [Suspect]

REACTIONS (3)
  - Infarction [Recovering/Resolving]
  - Angina pectoris [Recovering/Resolving]
  - Spinal pain [Recovering/Resolving]
